FAERS Safety Report 10334386 (Version 1)
Quarter: 2014Q3

REPORT INFORMATION
  Report Type: Spontaneous
  Country: SE (occurrence: SE)
  Receive Date: 20140723
  Receipt Date: 20140723
  Transmission Date: 20150326
  Serious: Yes (Other)
  Sender: FDA-Public Use
  Company Number: SE-JNJFOC-20140711118

PATIENT
  Age: 37 Year
  Sex: Female

DRUGS (4)
  1. REMICADE [Suspect]
     Active Substance: INFLIXIMAB
     Indication: COLITIS ULCERATIVE
     Route: 042
     Dates: start: 200909, end: 201012
  2. PENTASA [Concomitant]
     Active Substance: MESALAMINE
     Route: 065
  3. KALCIPOS [Concomitant]
     Active Substance: CALCIUM CARBONATE
     Route: 065
  4. PREDNISOLONE. [Concomitant]
     Active Substance: PREDNISOLONE
     Route: 065

REACTIONS (1)
  - Endometriosis [Unknown]

NARRATIVE: CASE EVENT DATE: 2013
